FAERS Safety Report 5402066-9 (Version None)
Quarter: 2007Q3

REPORT INFORMATION
  Report Type: 
  Country: None (occurrence: None)
  Receive Date: 20070727
  Receipt Date: 20070719
  Transmission Date: 20080115
  Serious: Yes (Hospitalization)
  Sender: FDA-Public Use
  Company Number: 2007S1000179

PATIENT
  Age: 55 Year
  Sex: Male

DRUGS (3)
  1. SORIATANE [Suspect]
     Indication: POROKERATOSIS
     Dosage: 25 MG; QD; PO
     Route: 048
     Dates: start: 20070501, end: 20070101
  2. ENBREL [Concomitant]
  3. CELEBREX [Concomitant]

REACTIONS (4)
  - CHEST PAIN [None]
  - DEEP VEIN THROMBOSIS [None]
  - PULMONARY EMBOLISM [None]
  - SKIN BURNING SENSATION [None]
